FAERS Safety Report 5021177-3 (Version None)
Quarter: 2006Q2

REPORT INFORMATION
  Report Type: 
  Country: None (occurrence: None)
  Receive Date: 20060608
  Receipt Date: 20060118
  Transmission Date: 20061013
  Serious: Yes (Death, Hospitalization)
  Sender: FDA-Public Use
  Company Number: HQWYE433019JAN06

PATIENT
  Sex: Female

DRUGS (8)
  1. ENBREL [Suspect]
     Indication: RHEUMATOID ARTHRITIS
     Dosage: UNKNOWN
     Route: 058
     Dates: start: 20011101, end: 20051226
  2. PREDNISOLONE [Suspect]
     Indication: RHEUMATOID ARTHRITIS
     Dates: start: 20050516, end: 20051228
  3. VOLTAREN [Suspect]
     Indication: RHEUMATOID ARTHRITIS
     Dates: start: 20050530, end: 20051228
  4. ADALAT [Concomitant]
     Dates: start: 20050530, end: 20051228
  5. CALCIUM LACTATE [Concomitant]
     Dates: start: 20050530, end: 20051228
  6. ALFACALCIDOL [Concomitant]
     Dates: start: 20050530, end: 20051228
  7. CANDESARTAN CILEXETIL [Concomitant]
     Dates: start: 20050530, end: 20051228
  8. ANTIDEPRESSANT NOS [Concomitant]

REACTIONS (6)
  - CARDIAC FAILURE ACUTE [None]
  - CONDITION AGGRAVATED [None]
  - DEHYDRATION [None]
  - DEPRESSION [None]
  - MALNUTRITION [None]
  - POSTURE ABNORMAL [None]
